FAERS Safety Report 20693256 (Version 1)
Quarter: 2022Q2

REPORT INFORMATION
  Report Type: Spontaneous
  Country: PK (occurrence: PK)
  Receive Date: 20220410
  Receipt Date: 20220410
  Transmission Date: 20220721
  Serious: Yes (Other)
  Sender: FDA-Public Use
  Company Number: PK-PFIZER INC-2021367706

PATIENT
  Age: 60 Year
  Sex: Male
  Weight: 46 kg

DRUGS (6)
  1. ENBREL [Suspect]
     Active Substance: ETANERCEPT
     Indication: Psoriatic arthropathy
     Dosage: 50 MG, WEEKLY
     Route: 058
     Dates: start: 202104
  2. DELTACORTRIL [Concomitant]
     Active Substance: PREDNISOLONE
     Dosage: 5 MG, (2+1+0, FOR 2 WEEKS THEN STOP)
  3. STARCOX [Concomitant]
     Dosage: 60 MG, (1+0, WHEN NEEDED)
  4. DISTALGESIC [DEXTROPROPOXYPHENE HYDROCHLORIDE;PARACETAMOL] [Concomitant]
     Dosage: 1+1
  5. LEFORA [Concomitant]
     Dosage: 20 MG, 1+0
  6. ESCITALOPRAM OXALATE [Concomitant]
     Active Substance: ESCITALOPRAM OXALATE
     Dosage: 10 MG, HALF FOR 1 WEEK AND THEN 1 CONTINUE

REACTIONS (3)
  - C-reactive protein increased [Unknown]
  - Arthralgia [Unknown]
  - Rash [Unknown]
